FAERS Safety Report 12275548 (Version 1)
Quarter: 2016Q2

REPORT INFORMATION
  Report Type: Spontaneous
  Country: US (occurrence: US)
  Receive Date: 20160417
  Receipt Date: 20160417
  Transmission Date: 20160815
  Serious: No
  Sender: FDA-Public Use
  Company Number: US-009507513-1604USA007479

PATIENT
  Sex: Male

DRUGS (4)
  1. REMERON [Suspect]
     Active Substance: MIRTAZAPINE
     Dosage: 15 MG/DAY
     Route: 048
     Dates: start: 201603, end: 201604
  2. REMERON [Suspect]
     Active Substance: MIRTAZAPINE
     Dosage: 22.5 MG/DAY
     Route: 048
     Dates: start: 201604, end: 201604
  3. REMERON [Suspect]
     Active Substance: MIRTAZAPINE
     Dosage: 15 MG/DAY
     Route: 048
     Dates: start: 201604
  4. REMERON [Suspect]
     Active Substance: MIRTAZAPINE
     Dosage: 7.5 MG/DAY
     Route: 048
     Dates: start: 201603, end: 201603

REACTIONS (1)
  - Neuropathy peripheral [Unknown]

NARRATIVE: CASE EVENT DATE: 2016
